FAERS Safety Report 8182619-8 (Version None)
Quarter: 2012Q1

REPORT INFORMATION
  Report Type: 
  Country: None (occurrence: None)
  Receive Date: 20120305
  Receipt Date: 20120227
  Transmission Date: 20120608
  Serious: Yes (Hospitalization, Other)
  Sender: FDA-Public Use
  Company Number: US-BAYER-2011-024440

PATIENT
  Age: 49 Year
  Sex: Female
  Weight: 63.492 kg

DRUGS (8)
  1. ALLEGRA [Concomitant]
  2. DIOVAN [Concomitant]
  3. ATUSS DM [Concomitant]
     Dosage: UNK UNK, PRN
     Route: 048
  4. CLONIDINE [Concomitant]
  5. NEXIUM [Concomitant]
  6. PREDNISONE [Concomitant]
  7. YASMIN [Suspect]
     Indication: CONTRACEPTION
     Dosage: UNK
     Route: 048
     Dates: start: 20030101, end: 20050601
  8. KETEK [Concomitant]
     Dosage: 2 DF, QD
     Route: 048

REACTIONS (2)
  - PULMONARY EMBOLISM [None]
  - FEAR [None]
